FAERS Safety Report 12009981 (Version 2)
Quarter: 2017Q2

REPORT INFORMATION
  Report Type: Spontaneous
  Country: US (occurrence: US)
  Receive Date: 20160205
  Receipt Date: 20170503
  Transmission Date: 20170829
  Serious: No
  Sender: FDA-Public Use
  Company Number: US-TEVA-610026USA

PATIENT
  Age: 36 Year
  Sex: Female

DRUGS (27)
  1. BACLOFEN. [Concomitant]
     Active Substance: BACLOFEN
  2. GABAPENTIN. [Concomitant]
     Active Substance: GABAPENTIN
  3. ENULOSE [Concomitant]
     Active Substance: LACTULOSE
  4. AZURETTE [Concomitant]
     Active Substance: DESOGESTREL\ETHINYL ESTRADIOL
     Dosage: 28 DAY
  5. WARFARIN [Concomitant]
     Active Substance: WARFARIN
  6. MONTELUKAST [Concomitant]
     Active Substance: MONTELUKAST SODIUM
  7. COPAXONE [Suspect]
     Active Substance: GLATIRAMER ACETATE
     Indication: MULTIPLE SCLEROSIS
     Route: 058
     Dates: start: 20100812
  8. HYDROCODONE BITARTRATE AND ACETAMINOPHEN [Concomitant]
     Active Substance: ACETAMINOPHEN\HYDROCODONE BITARTRATE
  9. PREDNISONE. [Concomitant]
     Active Substance: PREDNISONE
  10. DICLOFENAC [Concomitant]
     Active Substance: DICLOFENAC
  11. OMEPRAZOLE. [Concomitant]
     Active Substance: OMEPRAZOLE
  12. VITAMIN D [Concomitant]
     Active Substance: CHOLECALCIFEROL
  13. NAPROXEN. [Concomitant]
     Active Substance: NAPROXEN
  14. SOLU-MEDROL [Concomitant]
     Active Substance: METHYLPREDNISOLONE SODIUM SUCCINATE
  15. DOCQLACE [Concomitant]
     Active Substance: DOCUSATE SODIUM
  16. CELEBREX [Concomitant]
     Active Substance: CELECOXIB
  17. LORAZEPAM. [Concomitant]
     Active Substance: LORAZEPAM
  18. COUMADIN [Concomitant]
     Active Substance: WARFARIN SODIUM
  19. ZOLPIDEM [Concomitant]
     Active Substance: ZOLPIDEM\ZOLPIDEM TARTRATE
  20. PROMETHAZINE [Concomitant]
     Active Substance: PROMETHAZINE\PROMETHAZINE HYDROCHLORIDE
  21. AZITHROMYCIN ANHYDROUS. [Concomitant]
     Active Substance: AZITHROMYCIN ANHYDROUS
  22. VITAMIN D [Concomitant]
     Active Substance: CHOLECALCIFEROL
  23. SUCRALFATE. [Concomitant]
     Active Substance: SUCRALFATE
  24. NEO/POLY/HC [Concomitant]
  25. CLONAZEPAM. [Concomitant]
     Active Substance: CLONAZEPAM
  26. PAZEO [Concomitant]
     Active Substance: OLOPATADINE HYDROCHLORIDE
  27. LIDODERM [Concomitant]
     Active Substance: LIDOCAINE

REACTIONS (5)
  - Nausea [Recovered/Resolved]
  - Inappropriate schedule of drug administration [Unknown]
  - Chest discomfort [Recovered/Resolved]
  - Muscle fatigue [Recovering/Resolving]
  - Immediate post-injection reaction [Recovered/Resolved]

NARRATIVE: CASE EVENT DATE: 201510
